FAERS Safety Report 10692507 (Version 1)
Quarter: 2015Q1

REPORT INFORMATION
  Report Type: Spontaneous
  Country: PT (occurrence: PT)
  Receive Date: 20150106
  Receipt Date: 20150106
  Transmission Date: 20150720
  Serious: Yes (Other)
  Sender: FDA-Public Use
  Company Number: PT-TEVA-531961ISR

PATIENT
  Age: 73 Year
  Sex: Female
  Weight: 103.5 kg

DRUGS (15)
  1. LOSARTAN RATIOPHARM [Suspect]
     Active Substance: LOSARTAN
     Indication: HYPERTENSION
     Dosage: 100 MILLIGRAM DAILY;
     Route: 048
     Dates: start: 20090108
  2. FOSAVANCE [Concomitant]
     Active Substance: ALENDRONATE SODIUM\CHOLECALCIFEROL
     Indication: OSTEOPOROSIS
     Dates: start: 20070308
  3. RABEPRAZOL ACTAVIS [Concomitant]
     Indication: GASTROOESOPHAGEAL REFLUX DISEASE
     Dosage: 20 MILLIGRAM DAILY; GASTRO-RESISTANT TABLET
     Route: 048
  4. SERTRALINA FARMOZ 100 MG COMPRIMIDOS [Concomitant]
     Indication: DEPRESSION
     Dosage: 20 MILLIGRAM DAILY;
     Route: 048
  5. EUTIROX [Concomitant]
     Active Substance: LEVOTHYROXINE SODIUM
     Indication: HYPOTHYROIDISM
     Dosage: .05 MILLIGRAM DAILY;
     Route: 048
     Dates: start: 20080529
  6. ALPHAGAN P [Concomitant]
     Active Substance: BRIMONIDINE TARTRATE
     Indication: GLAUCOMA
     Dosage: EYE DROPS, SOLUTION
     Route: 047
  7. MACROGOL EBELING + ASSOC. [Concomitant]
     Indication: CONSTIPATION
     Dosage: 1000 MILLIGRAM DAILY;
     Route: 048
  8. TRAMADOL + PARACETAMOL [Concomitant]
     Active Substance: ACETAMINOPHEN\TRAMADOL
     Indication: PAIN
     Dosage: 1 DOSAGE FORMS DAILY; BY 3 TIMES / DAY SOS
     Route: 048
  9. GABAPENTINA TOLIFE [Concomitant]
     Active Substance: GABAPENTIN
     Indication: NEUROPATHY PERIPHERAL
     Dosage: 1800 MILLIGRAM DAILY;
     Route: 048
     Dates: start: 20130318
  10. LASIX [Concomitant]
     Active Substance: FUROSEMIDE
     Indication: HYPERTENSION
     Dosage: 40 MILLIGRAM DAILY;
     Route: 048
  11. PICALM [Concomitant]
     Indication: ANTIINFLAMMATORY THERAPY
     Dosage: 3 DOSAGE FORMS DAILY;
     Route: 003
  12. SPIRIVA [Concomitant]
     Active Substance: TIOTROPIUM BROMIDE MONOHYDRATE
     Indication: BRONCHITIS CHRONIC
     Dosage: 1 DOSAGE FORMS DAILY;
     Dates: start: 20120314
  13. TRAVEX LONG 200 MG [Concomitant]
     Indication: PAIN
     Dosage: 200 MILLIGRAM DAILY;
     Route: 048
  14. LORENIN [Concomitant]
     Active Substance: LORAZEPAM
     Indication: INSOMNIA
     Dosage: 2.5 MILLIGRAM DAILY;
     Route: 048
     Dates: start: 20070821
  15. CALCIORAL [Concomitant]
     Indication: OSTEOPOROSIS
     Dosage: 1250 MILLIGRAM DAILY;
     Route: 048

REACTIONS (1)
  - Lung neoplasm malignant [Not Recovered/Not Resolved]

NARRATIVE: CASE EVENT DATE: 20141030
